FAERS Safety Report 7077720-6 (Version None)
Quarter: 2010Q4

REPORT INFORMATION
  Report Type: 
  Country: None (occurrence: None)
  Receive Date: 20101101
  Receipt Date: 20101018
  Transmission Date: 20110411
  Serious: Yes (Other)
  Sender: FDA-Public Use
  Company Number: BE-GENENTECH-305531

PATIENT
  Sex: Female

DRUGS (2)
  1. LUCENTIS [Suspect]
     Indication: MACULAR DEGENERATION
     Dosage: UNK
     Route: 031
     Dates: start: 20100812
  2. LUCENTIS [Suspect]
     Dosage: UNK
     Route: 031

REACTIONS (2)
  - CORNEAL EROSION [None]
  - CORNEAL OEDEMA [None]
